FAERS Safety Report 5282165-5 (Version None)
Quarter: 2007Q1

REPORT INFORMATION
  Report Type: 
  Country: None (occurrence: None)
  Receive Date: 20070330
  Receipt Date: 20070319
  Transmission Date: 20070707
  Serious: Yes (Other)
  Sender: FDA-Public Use
  Company Number: PFIZER INC-2007007669

PATIENT
  Sex: Female
  Weight: 59.9 kg

DRUGS (12)
  1. LYRICA [Suspect]
     Indication: HERPES ZOSTER
     Route: 048
     Dates: start: 20070115, end: 20070120
  2. LYRICA [Suspect]
     Indication: NEUROPATHY PERIPHERAL
  3. VITAMINS [Concomitant]
  4. ANTIHYPERTENSIVES [Concomitant]
     Indication: HYPERTENSION
  5. NORVASC [Concomitant]
  6. ZESTRIL [Concomitant]
  7. LASIX [Concomitant]
  8. MENEST [Concomitant]
  9. RESTORIL [Concomitant]
  10. ACETYLSALICYLIC ACID SRT [Concomitant]
  11. POTASSIUM ACETATE [Concomitant]
  12. TYLENOL [Concomitant]

REACTIONS (2)
  - CONVULSION [None]
  - TREMOR [None]
